FAERS Safety Report 9601927 (Version 1)
Quarter: 2013Q4

REPORT INFORMATION
  Report Type: Spontaneous
  Country: FR (occurrence: None)
  Receive Date: 20131002
  Receipt Date: 20131002
  Transmission Date: 20140711
  Serious: Yes (Hospitalization)
  Sender: FDA-Public Use
  Company Number: 2013000262

PATIENT
  Age: 59 Year
  Sex: Male

DRUGS (9)
  1. ACEON (PERINDOPRIL ERBUMINE) TABLET [Suspect]
     Indication: HYPERTENSION
     Route: 048
     Dates: end: 20130523
  2. GLUCOPHAGE [Suspect]
     Route: 048
     Dates: end: 20130523
  3. VELMETIA [Suspect]
     Dosage: 1 DF, BID, ORAL
     Dates: start: 201305, end: 20130523
  4. PROFENID (KETOPROFEN) [Suspect]
     Indication: PRODUCT USED FOR UNKNOWN INDICATION
     Route: 048
     Dates: start: 201305, end: 20130523
  5. DIAMICRON (GLICIAZIDE) [Concomitant]
  6. KARDEGIC (ACETYSALICYTATE LYSINE) [Concomitant]
  7. PLAVIX (CLOPIDOGREL SULFATE) [Concomitant]
  8. SECTRAL (ACEBUTOLOL HYDROCHLORIDE) [Concomitant]
  9. CRESTOR (ROSUVASTATIN CALCIUM) [Concomitant]

REACTIONS (7)
  - Pulmonary oedema [None]
  - Lactic acidosis [None]
  - Metabolic acidosis [None]
  - Hydronephrosis [None]
  - Calculus ureteric [None]
  - Renal failure [None]
  - Hypotension [None]
